FAERS Safety Report 8474128-3 (Version None)
Quarter: 2012Q2

REPORT INFORMATION
  Report Type: 
  Country: None (occurrence: None)
  Receive Date: 20120628
  Receipt Date: 20120622
  Transmission Date: 20120825
  Serious: Yes (Other)
  Sender: FDA-Public Use
  Company Number: US-PFIZER INC-2010034452

PATIENT
  Sex: Female

DRUGS (19)
  1. MORPHINE [Concomitant]
     Indication: PAIN
     Dosage: 60 MG, UNK
     Route: 042
     Dates: start: 20080806
  2. GEODON [Concomitant]
     Dosage: 80 MG, 4X/DAY
     Dates: start: 20080806
  3. MAGNESIUM [Concomitant]
     Indication: HYPOKALAEMIA
     Dosage: UNK
     Route: 042
     Dates: start: 20080807
  4. DILANTIN [Suspect]
     Indication: CONVULSION
     Dosage: ONCE IN MORNING
     Route: 042
     Dates: start: 20080807
  5. METOCLOPRAMIDE [Concomitant]
     Dosage: 10 MG, UNK
     Route: 042
     Dates: start: 20080807, end: 20080907
  6. ATIVAN [Concomitant]
     Dosage: 2 MG DAILY
     Route: 042
     Dates: start: 20080809
  7. FENTANYL [Concomitant]
     Dosage: 100 MG, UNK
     Route: 042
     Dates: start: 20080810
  8. NEXIUM [Concomitant]
     Dosage: 40 MG, UNK
     Route: 048
     Dates: start: 20080810, end: 20080910
  9. AMBIEN [Concomitant]
     Dosage: 5 MG, UNK
     Route: 048
     Dates: start: 20080811, end: 20080818
  10. DEPAKOTE [Concomitant]
     Dosage: 500 MG, 2X/DAY
     Route: 048
     Dates: start: 20080812, end: 20080911
  11. IBUPROFEN [Concomitant]
     Dosage: 800 MG, 1X/DAY
     Route: 048
     Dates: start: 20080806
  12. PHENYTOIN [Concomitant]
     Dosage: 300 MG, 1X/DAY (EVERY BED TIME)
     Route: 048
     Dates: start: 20080807, end: 20080907
  13. ACETAMINOPHEN [Concomitant]
     Dosage: 650 MG, UNK
     Dates: start: 20080810, end: 20080909
  14. DILANTIN [Suspect]
     Dosage: EVERY BED TIME
     Route: 048
     Dates: start: 20080807
  15. REGLAN [Concomitant]
     Dosage: 10 MG, 4X/DAY
     Route: 042
     Dates: start: 20080810
  16. DILANTIN [Suspect]
     Dosage: 300MG EVERY BED TIME
     Route: 042
     Dates: start: 20080807
  17. ZOLOFT [Concomitant]
     Dosage: 100MG ONE TABLET DAILY
     Route: 048
     Dates: start: 20080806
  18. VICODIN [Concomitant]
     Dosage: 500 MG, 4X/DAY (EVERY SIX HOURS)
     Route: 048
     Dates: start: 20080811, end: 20080818
  19. CLONAZEPAM [Concomitant]
     Dosage: UNK
     Dates: start: 20080809

REACTIONS (1)
  - STEVENS-JOHNSON SYNDROME [None]
